FAERS Safety Report 24054531 (Version 1)
Quarter: 2024Q3

REPORT INFORMATION
  Report Type: Spontaneous
  Country: GR (occurrence: GR)
  Receive Date: 20240705
  Receipt Date: 20240705
  Transmission Date: 20241016
  Serious: Yes (Death, Other)
  Sender: EXELIXIS
  Company Number: GR-EXELIXIS-CABO-24079058

PATIENT
  Age: 45 Year
  Sex: Male

DRUGS (1)
  1. CABOMETYX [Suspect]
     Active Substance: CABOZANTINIB S-MALATE
     Indication: Poorly differentiated thyroid carcinoma
     Dosage: 60 MG
     Dates: start: 202206, end: 202207

REACTIONS (2)
  - Vessel perforation [Unknown]
  - Haemorrhage [Fatal]
